FAERS Safety Report 16663771 (Version 1)
Quarter: 2019Q3

REPORT INFORMATION
  Report Type: Spontaneous
  Country: US (occurrence: US)
  Receive Date: 20190802
  Receipt Date: 20190802
  Transmission Date: 20191004
  Serious: Yes (Other)
  Sender: FDA-Public Use
  Company Number: US-PURDUE-USA-2019-0147901

PATIENT

DRUGS (4)
  1. DILAUDID [Suspect]
     Active Substance: HYDROMORPHONE HYDROCHLORIDE
     Indication: ARTHRITIS
  2. CELEBREX [Suspect]
     Active Substance: CELECOXIB
     Indication: ARTHRITIS
     Dosage: 400 MG, DAILY
     Route: 048
  3. LIDOCAINE. [Suspect]
     Active Substance: LIDOCAINE
     Indication: PAIN
     Dosage: 5 %, PUT ON UP TO 2 PATCHES EVERY 24-48 HRS
     Route: 062
  4. DILAUDID [Suspect]
     Active Substance: HYDROMORPHONE HYDROCHLORIDE
     Indication: ATROPHY
     Dosage: 4 MG, 2-3 X DAILY
     Route: 048

REACTIONS (10)
  - Cholecystectomy [Recovered/Resolved]
  - Drug ineffective [Unknown]
  - Pain [Unknown]
  - Myocardial infarction [Unknown]
  - Malaise [Unknown]
  - Seizure [Unknown]
  - Gastrointestinal surgery [Recovered/Resolved]
  - Anaemia [Unknown]
  - Aneurysm [Unknown]
  - Cerebrovascular accident [Unknown]

NARRATIVE: CASE EVENT DATE: 2007
